FAERS Safety Report 22099785 (Version 2)
Quarter: 2023Q2

REPORT INFORMATION
  Report Type: Spontaneous
  Country: US (occurrence: US)
  Receive Date: 20230315
  Receipt Date: 20230501
  Transmission Date: 20230722
  Serious: No
  Sender: FDA-Public Use
  Company Number: US-PFIZER INC-PV202300020034

PATIENT
  Age: 66 Year
  Sex: Female
  Weight: 129 kg

DRUGS (3)
  1. PREMPRO [Suspect]
     Active Substance: ESTROGENS, CONJUGATED\MEDROXYPROGESTERONE ACETATE
     Indication: Menopause
     Dosage: UNK UNK, DAILY (0.45MG/1.5MG PER DAY)
     Dates: start: 2008
  2. FLUOXETINE [Concomitant]
     Active Substance: FLUOXETINE HYDROCHLORIDE
     Dosage: UNK
     Dates: start: 2017
  3. AMABELZ [Concomitant]
     Active Substance: ESTRADIOL\NORETHINDRONE
     Dosage: UNK (0.5-O.1 MG FOR A MONTH)

REACTIONS (5)
  - Product dose omission issue [Unknown]
  - Muscular weakness [Recovered/Resolved]
  - Arthralgia [Recovered/Resolved]
  - Fatigue [Recovered/Resolved]
  - Mood swings [Recovered/Resolved]

NARRATIVE: CASE EVENT DATE: 20230101
